FAERS Safety Report 4278566-4 (Version None)
Quarter: 2004Q1

REPORT INFORMATION
  Report Type: 
  Country: None (occurrence: None)
  Receive Date: 20040122
  Receipt Date: 20040109
  Transmission Date: 20041129
  Serious: No
  Sender: FDA-Public Use
  Company Number: 2004-111762-NL

PATIENT
  Age: 39 Year
  Sex: Male

DRUGS (19)
  1. ROCURONIUM BROMIDE [Suspect]
     Indication: MUSCLE RELAXANT THERAPY
     Dosage: 35 MG
     Dates: start: 20031002, end: 20031003
  2. HL10 [Suspect]
     Indication: ACUTE RESPIRATORY DISTRESS SYNDROME
     Dosage: 360 ML/180ML, ENDOTRACHEAL
     Route: 007
     Dates: start: 20031002, end: 20031002
  3. HL10 [Suspect]
     Indication: ACUTE RESPIRATORY DISTRESS SYNDROME
     Dosage: 360 ML/180ML, ENDOTRACHEAL
     Route: 007
     Dates: start: 20031003, end: 20031003
  4. PROPOFOL [Suspect]
     Indication: SEDATION
     Dosage: 2800 MG
     Dates: start: 20031002, end: 20031003
  5. CEFUROXIME [Concomitant]
  6. METRONIDAZOLE [Concomitant]
  7. CIPROFLOXACIN [Concomitant]
  8. ACETAMINOPHEN [Concomitant]
  9. TOBRAMYCIN [Concomitant]
  10. AMPHOTERICIN B [Concomitant]
  11. METOCLOPRAMIDE [Concomitant]
  12. OMEPRAZOLE [Concomitant]
  13. PREDNISOLONE [Concomitant]
  14. LACTULOSE [Concomitant]
  15. MORFIN [Concomitant]
  16. INSULIN [Concomitant]
  17. FUROSEMIDE [Concomitant]
  18. NEOSTIGMINE [Concomitant]
  19. ATROPINE SULFATE [Concomitant]

REACTIONS (2)
  - METABOLIC ACIDOSIS [None]
  - RESPIRATORY ACIDOSIS [None]
